FAERS Safety Report 8481174-2 (Version None)
Quarter: 2012Q2

REPORT INFORMATION
  Report Type: 
  Country: None (occurrence: None)
  Receive Date: 20120618
  Receipt Date: 20120607
  Transmission Date: 20120825
  Serious: Yes (Other)
  Sender: FDA-Public Use
  Company Number: 2012SP030059

PATIENT
  Sex: Female

DRUGS (4)
  1. PEGASYS [Suspect]
     Indication: HEPATITIS C
     Dates: start: 19990604, end: 20000407
  2. RIBAVIRIN [Suspect]
     Indication: HEPATITIS C
     Dates: start: 20120601
  3. RIBAVIRIN [Suspect]
     Indication: HEPATITIS C
     Dates: start: 19990604, end: 20000407
  4. PEG-INTRON [Suspect]
     Indication: HEPATITIS C
     Dates: start: 20120601

REACTIONS (2)
  - SARCOIDOSIS [None]
  - INJECTION SITE ERYTHEMA [None]
